FAERS Safety Report 13331533 (Version 2)
Quarter: 2017Q1

REPORT INFORMATION
  Report Type: Spontaneous
  Country: BR (occurrence: BR)
  Receive Date: 20170314
  Receipt Date: 20170322
  Transmission Date: 20170428
  Serious: Yes (Other)
  Sender: FDA-Public Use
  Company Number: BR-009507513-1703BRA006002

PATIENT
  Sex: Female
  Weight: 55 kg

DRUGS (1)
  1. JANUVIA [Suspect]
     Active Substance: SITAGLIPTIN PHOSPHATE
     Indication: DIABETES MELLITUS
     Dosage: 1 TABLET ORALLY IN THE MORNING AND 1 TABLET ORALLY
     Route: 048

REACTIONS (9)
  - Diabetes mellitus inadequate control [Unknown]
  - Deafness [Unknown]
  - Colon cancer [Unknown]
  - Panic disorder [Unknown]
  - Breast cancer [Unknown]
  - Weight decreased [Unknown]
  - Hypertension [Unknown]
  - Blood cholesterol increased [Unknown]
  - Depression [Unknown]

NARRATIVE: CASE EVENT DATE: 2013
